FAERS Safety Report 7196057-8 (Version None)
Quarter: 2010Q4

REPORT INFORMATION
  Report Type: 
  Country: None (occurrence: None)
  Receive Date: 20101223
  Receipt Date: 20101014
  Transmission Date: 20110411
  Serious: No
  Sender: FDA-Public Use
  Company Number: US-AMGEN-USASP2010000344

PATIENT

DRUGS (3)
  1. ENBREL [Suspect]
     Indication: RHEUMATOID ARTHRITIS
     Dates: start: 20071020
  2. SULFASALAZINE [Concomitant]
     Dosage: 1 MG, QD
     Dates: start: 20071001
  3. METHOTREXATE [Concomitant]
     Dates: start: 20071001

REACTIONS (1)
  - ARTHRALGIA [None]
